FAERS Safety Report 6257871-6 (Version None)
Quarter: 2009Q3

REPORT INFORMATION
  Report Type: 
  Country: None (occurrence: None)
  Receive Date: 20090707
  Receipt Date: 20090605
  Transmission Date: 20100115
  Serious: Yes (Hospitalization)
  Sender: FDA-Public Use
  Company Number: JP-RANBAXY-2009RR-24845

PATIENT
  Sex: Female

DRUGS (3)
  1. FENOFIBRATE [Suspect]
     Indication: HYPERLIPIDAEMIA
     Dosage: 100 MG, QD
     Route: 048
     Dates: start: 20090304, end: 20090323
  2. FEXOFENADINE [Suspect]
     Indication: RHINITIS ALLERGIC
     Dosage: 120 MG, QD
     Route: 048
     Dates: start: 20090304, end: 20090323
  3. NIFEDIPINE [Concomitant]
     Dosage: UNK
     Dates: start: 20090224, end: 20090323

REACTIONS (1)
  - HEPATIC FUNCTION ABNORMAL [None]
